FAERS Safety Report 22644800 (Version 5)
Quarter: 2023Q4

REPORT INFORMATION
  Report Type: Spontaneous
  Country: KR (occurrence: KR)
  Receive Date: 20230627
  Receipt Date: 20231226
  Transmission Date: 20240110
  Serious: Yes (Hospitalization, Other)
  Sender: FDA-Public Use
  Company Number: KR-009507513-2306KOR010429

PATIENT
  Age: 53 Year
  Sex: Female
  Weight: 57 kg

DRUGS (7)
  1. PEMBROLIZUMAB [Suspect]
     Active Substance: PEMBROLIZUMAB
     Indication: Endometrial cancer recurrent
     Dosage: 200 MILLIGRAM
     Route: 042
     Dates: start: 20230613, end: 20230613
  2. LENVATINIB MESYLATE [Suspect]
     Active Substance: LENVATINIB MESYLATE
     Indication: Endometrial cancer recurrent
     Dosage: 20 MILLIGRAM
     Route: 048
     Dates: start: 20230613, end: 20230625
  3. LENVATINIB MESYLATE [Suspect]
     Active Substance: LENVATINIB MESYLATE
     Dosage: 10 MILLIGRAM, QD
     Route: 048
     Dates: start: 20230626, end: 20230629
  4. DULASTIN [Concomitant]
     Indication: Prophylaxis
     Dosage: 6 MILLIGRAM, QD
     Route: 058
     Dates: start: 20210719
  5. PHAZYME COMPLEX [Concomitant]
     Indication: Prophylaxis
     Dosage: 1 TABLET
     Route: 048
     Dates: start: 20230613
  6. MAGNESIUM OXIDE [Concomitant]
     Active Substance: MAGNESIUM OXIDE
     Indication: Constipation prophylaxis
     Dosage: 1 CAPSULE
     Route: 048
     Dates: start: 20230612
  7. CALCIUM POLYCARBOPHIL [Concomitant]
     Active Substance: CALCIUM POLYCARBOPHIL
     Indication: Constipation prophylaxis
     Dosage: 2 TABLETS
     Route: 048
     Dates: start: 20230612

REACTIONS (3)
  - Hydronephrosis [Recovered/Resolved]
  - Intestinal perforation [Recovering/Resolving]
  - Rash [Unknown]

NARRATIVE: CASE EVENT DATE: 20230614
